FAERS Safety Report 23606460 (Version 3)
Quarter: 2024Q2

REPORT INFORMATION
  Report Type: Spontaneous
  Country: DE (occurrence: DE)
  Receive Date: 20240307
  Receipt Date: 20240408
  Transmission Date: 20240716
  Serious: Yes (Life-Threatening, Hospitalization, Other)
  Sender: FDA-Public Use
  Company Number: DE-009507513-2403DEU001216

PATIENT
  Age: 51 Year
  Sex: Female

DRUGS (3)
  1. PEMBROLIZUMAB [Suspect]
     Active Substance: PEMBROLIZUMAB
     Indication: Triple negative breast cancer
     Dosage: 200MG, INTERVAL: 21 (UNIT NOT PROVIDED)
     Dates: start: 20230208, end: 20230208
  2. CARBOPLATIN [Concomitant]
     Active Substance: CARBOPLATIN
     Indication: Triple negative breast cancer
     Dosage: 474, 46 MG
     Route: 042
     Dates: start: 20230208, end: 20230222
  3. PACLITAXEL [Concomitant]
     Active Substance: PACLITAXEL
     Indication: Triple negative breast cancer
     Dosage: 137 MILLIGRAM
     Route: 042
     Dates: start: 20230208, end: 20230222

REACTIONS (5)
  - Acute hepatic failure [Recovering/Resolving]
  - Acute kidney injury [Unknown]
  - Immune-mediated hepatitis [Recovering/Resolving]
  - Tubulointerstitial nephritis [Unknown]
  - Immune-mediated nephritis [Recovering/Resolving]

NARRATIVE: CASE EVENT DATE: 20230201
